FAERS Safety Report 8844056 (Version 1)
Quarter: 2012Q4

REPORT INFORMATION
  Report Type: 
  Country: DE (occurrence: DE)
  Receive Date: 20121016
  Receipt Date: 20121016
  Transmission Date: 20130627
  Serious: Yes (Other)
  Sender: FDA-Public Use
  Company Number: DE-PFIZER INC-2012254723

PATIENT
  Age: 66 Year
  Sex: Male
  Weight: 72 kg

DRUGS (3)
  1. PANTOPRAZOLE [Suspect]
     Indication: GASTROOESOPHAGEAL REFLUX DISEASE
     Dosage: 40mg, Daily
     Route: 065
     Dates: end: 201201
  2. PANTOPRAZOLE [Suspect]
     Dosage: 40 mg, 2x/day
     Dates: start: 201201, end: 201209
  3. AMLODIPIN [Concomitant]
     Dosage: as needed

REACTIONS (3)
  - Vocal cord paralysis [Not Recovered/Not Resolved]
  - Dysphagia [Not Recovered/Not Resolved]
  - Sensation of foreign body [Not Recovered/Not Resolved]
